FAERS Safety Report 6399104-6 (Version None)
Quarter: 2009Q4

REPORT INFORMATION
  Report Type: 
  Country: None (occurrence: None)
  Receive Date: 20091013
  Receipt Date: 20091008
  Transmission Date: 20100525
  Serious: Yes (Hospitalization)
  Sender: FDA-Public Use
  Company Number: US-MERCK-0910USA00989

PATIENT
  Sex: Male

DRUGS (2)
  1. ZOLINZA [Suspect]
     Route: 048
  2. BACTRIM [Concomitant]
     Route: 065

REACTIONS (1)
  - RENAL FAILURE [None]
